FAERS Safety Report 5043160-4 (Version None)
Quarter: 2006Q3

REPORT INFORMATION
  Report Type: 
  Country: None (occurrence: None)
  Receive Date: 20060703
  Receipt Date: 20060703
  Transmission Date: 20061208
  Serious: Yes (Hospitalization)
  Sender: FDA-Public Use
  Company Number: None

PATIENT
  Age: 47 Year
  Sex: Male
  Weight: 82 kg

DRUGS (1)
  1. IBUPROFEN [Suspect]
     Indication: ANKLE FRACTURE
     Dosage: 1600 MG QID PO
     Route: 048
     Dates: start: 20060301

REACTIONS (1)
  - ANAPHYLACTIC REACTION [None]
